FAERS Safety Report 7406355-8 (Version None)
Quarter: 2011Q2

REPORT INFORMATION
  Report Type: 
  Country: None (occurrence: None)
  Receive Date: 20110411
  Receipt Date: 20110401
  Transmission Date: 20111010
  Serious: Yes (Other)
  Sender: FDA-Public Use
  Company Number: JP-PFIZER INC-2010113185

PATIENT
  Age: 45 Year
  Sex: Male

DRUGS (12)
  1. LENDORMIN [Concomitant]
     Dosage: 1 DF, 1X/DAY
     Route: 048
     Dates: start: 20100122
  2. EBUTOL [Concomitant]
     Indication: TUBERCULOSIS
     Dosage: 3 DF, 1X/DAY
     Route: 048
     Dates: start: 20100303, end: 20101103
  3. ZIDOVUDINE [Concomitant]
  4. FOSAMPRENAVIR [Concomitant]
  5. PYDOXAL [Concomitant]
     Dosage: 1 DF, 1X/DAY
     Route: 048
     Dates: start: 20100303, end: 20101103
  6. BAKTAR [Concomitant]
     Dosage: 1 DF, 1X/DAY
     Route: 048
     Dates: start: 20100210, end: 20100622
  7. ISONIAZID [Concomitant]
     Indication: TUBERCULOSIS
     Dosage: 3 DF, 1X/DAY
     Route: 048
     Dates: start: 20100303, end: 20101103
  8. PYRAMIDE [Concomitant]
     Indication: TUBERCULOSIS
     Dosage: 1.2 G, 1X/DAY
     Route: 048
     Dates: start: 20100303, end: 20101103
  9. TOLEDOMIN [Concomitant]
     Dosage: 1 DF, 1X/DAY
     Route: 048
     Dates: start: 20100216
  10. ISENTRESS [Suspect]
     Indication: HIV INFECTION
     Dosage: 2 DF, 2X/DAY
     Route: 048
     Dates: start: 20100225, end: 20100518
  11. MYCOBUTIN [Suspect]
     Indication: TUBERCULOSIS
     Dosage: 2 DF, 1X/DAY
     Route: 048
     Dates: start: 20100303, end: 20101103
  12. TRUVADA [Concomitant]
     Indication: HIV INFECTION
     Dosage: 1 DF, 1X/DAY
     Route: 048
     Dates: start: 20100225, end: 20100101

REACTIONS (1)
  - DRUG RESISTANCE [None]
